FAERS Safety Report 8315770-X (Version None)
Quarter: 2012Q2

REPORT INFORMATION
  Report Type: 
  Country: None (occurrence: None)
  Receive Date: 20120426
  Receipt Date: 20120417
  Transmission Date: 20120825
  Serious: Yes (Hospitalization)
  Sender: FDA-Public Use
  Company Number: US-ELI_LILLY_AND_COMPANY-US201203007408

PATIENT
  Sex: Female

DRUGS (13)
  1. FORTEO [Suspect]
     Indication: OSTEOPOROSIS
     Dosage: 20 UG, QD
     Route: 065
     Dates: start: 20111201
  2. METFORMIN [Concomitant]
  3. APIDRA [Concomitant]
  4. ESTRADIOL [Concomitant]
  5. IRON [Concomitant]
  6. FORTEO [Suspect]
     Dosage: 20 UG, QD
  7. LEVOTHYROXINE SODIUM [Concomitant]
     Dosage: UNK, EACH EVENING
  8. PRAVASTATIN [Concomitant]
     Dosage: UNK, EACH EVENING
  9. GABAPENTIN [Concomitant]
     Dosage: UNK, EACH EVENING
  10. PROGESTERONE [Concomitant]
  11. VITAMINS NOS [Concomitant]
  12. FISH OIL [Concomitant]
  13. CALCIUM [Concomitant]

REACTIONS (8)
  - MOVEMENT DISORDER [None]
  - DIABETES MELLITUS INADEQUATE CONTROL [None]
  - MALAISE [None]
  - INTERVERTEBRAL DISC INJURY [None]
  - NERVOUS SYSTEM DISORDER [None]
  - FATIGUE [None]
  - POSTURE ABNORMAL [None]
  - ARRHYTHMIA [None]
